FAERS Safety Report 4301725-9 (Version None)
Quarter: 2004Q1

REPORT INFORMATION
  Report Type: 
  Country: None (occurrence: None)
  Receive Date: 20040218
  Receipt Date: 20031117
  Transmission Date: 20041129
  Serious: Yes (Hospitalization, Other)
  Sender: FDA-Public Use
  Company Number: 2003-11-1356

PATIENT
  Age: 45 Year
  Sex: Female
  Weight: 73.9363 kg

DRUGS (7)
  1. PEG-INTRON [Suspect]
     Indication: HEPATITIS C
     Dosage: 80 MCG QW
     Route: 058
     Dates: start: 20031007, end: 20031115
  2. LASIX [Concomitant]
  3. TYLENOL (CAPLET) [Concomitant]
  4. WELLBUTRIN (BUPRONION) [Concomitant]
  5. PROMETHAZINE RPN RECTAL [Concomitant]
  6. MULTI-VITAMINS [Concomitant]
  7. ACIPHEX (RABEPRZAZOLE) [Concomitant]

REACTIONS (2)
  - CHOLELITHIASIS [None]
  - PANCREATITIS [None]
